FAERS Safety Report 19657184 (Version 1)
Quarter: 2021Q3

REPORT INFORMATION
  Report Type: Spontaneous
  Country: ES (occurrence: ES)
  Receive Date: 20210804
  Receipt Date: 20210804
  Transmission Date: 20211014
  Serious: Yes (Hospitalization)
  Sender: FDA-Public Use
  Company Number: ES-MYLANLABS-2021M1047633

PATIENT
  Age: 64 Year
  Sex: Female

DRUGS (5)
  1. ASENAPINE MALEATE [Interacting]
     Active Substance: ASENAPINE MALEATE
     Indication: BIPOLAR I DISORDER
     Dosage: 10 MILLIGRAM, QD
     Route: 048
     Dates: start: 20200302, end: 20200625
  2. DIAZEPAM. [Concomitant]
     Active Substance: DIAZEPAM
     Dosage: UNK
     Route: 048
     Dates: start: 2018
  3. LITIO CARBONATO [Interacting]
     Active Substance: LITHIUM CARBONATE
     Indication: BIPOLAR I DISORDER
     Dosage: 400 MILLIGRAM, BID
     Route: 048
     Dates: start: 2000, end: 20200625
  4. OLANZAPINE. [Suspect]
     Active Substance: OLANZAPINE
     Indication: BIPOLAR I DISORDER
     Dosage: 5 MILLIGRAM, QD
     Route: 048
     Dates: start: 20200522, end: 20200625
  5. VALPROIC ACID. [Concomitant]
     Active Substance: VALPROIC ACID
     Dosage: 1200 MILLIGRAM, QD
     Route: 048
     Dates: start: 2018

REACTIONS (2)
  - Drug interaction [Recovered/Resolved]
  - Neuroleptic malignant syndrome [Recovered/Resolved]

NARRATIVE: CASE EVENT DATE: 20200625
